FAERS Safety Report 7210568-8 (Version None)
Quarter: 2011Q1

REPORT INFORMATION
  Report Type: 
  Country: None (occurrence: None)
  Receive Date: 20110105
  Receipt Date: 20101223
  Transmission Date: 20110831
  Serious: Yes (Other)
  Sender: FDA-Public Use
  Company Number: PHHY2010US86660

PATIENT
  Sex: Female

DRUGS (8)
  1. MICARDIS [Interacting]
     Dosage: 40 MG ONE TIME A DAY
     Route: 048
  2. TEKTURNA [Suspect]
     Dosage: 150 MG DAILY
     Route: 048
  3. SYNTHROID [Concomitant]
  4. OSCAL 500-D [Concomitant]
  5. TEKTURNA [Interacting]
     Dosage: 150 MG DAILY
     Route: 048
     Dates: start: 20101216
  6. ASPIRIN [Concomitant]
  7. CENTRUM SILVER [Concomitant]
  8. FORMULA 3 [Concomitant]

REACTIONS (8)
  - ABDOMINAL DISCOMFORT [None]
  - APPETITE DISORDER [None]
  - FLUID RETENTION [None]
  - DRUG INTERACTION [None]
  - BLOOD PRESSURE DIASTOLIC DECREASED [None]
  - DIARRHOEA [None]
  - FLATULENCE [None]
  - POLLAKIURIA [None]
